FAERS Safety Report 18874203 (Version 4)
Quarter: 2021Q4

REPORT INFORMATION
  Report Type: Report from Study
  Country: ES (occurrence: ES)
  Receive Date: 20210210
  Receipt Date: 20211117
  Transmission Date: 20220303
  Serious: Yes (Hospitalization)
  Sender: FDA-Public Use
  Company Number: ES-TAKEDA-ES201600540

PATIENT
  Age: 12 Year
  Sex: Male

DRUGS (4)
  1. IDURSULFASE [Suspect]
     Active Substance: IDURSULFASE
     Indication: Mucopolysaccharidosis II
     Dosage: 0.39 MG/KG ALTERNATING WITH 0.54 MG/KG, 1X/WEEK
     Route: 041
     Dates: start: 20140515
  2. IDURSULFASE [Suspect]
     Active Substance: IDURSULFASE
     Dosage: 0.31 MG/KG, 1X/WEEK
     Route: 041
     Dates: start: 20061130
  3. IDURSULFASE [Suspect]
     Active Substance: IDURSULFASE
     Dosage: UNK
     Route: 041
     Dates: start: 2007
  4. IDURSULFASE [Suspect]
     Active Substance: IDURSULFASE
     Dosage: 0.53 MILLIGRAM/KILOGRAM, 1/WEEK
     Route: 042
     Dates: start: 20160524

REACTIONS (5)
  - Carpal tunnel syndrome [Recovered/Resolved]
  - Infusion related reaction [Recovered/Resolved]
  - Headache [Unknown]
  - Drug specific antibody absent [Unknown]
  - Urticaria [Recovered/Resolved]

NARRATIVE: CASE EVENT DATE: 20080605
